FAERS Safety Report 11853056 (Version 1)
Quarter: 2015Q4

REPORT INFORMATION
  Report Type: Report from Study
  Country: KR (occurrence: KR)
  Receive Date: 20151218
  Receipt Date: 20151218
  Transmission Date: 20160305
  Serious: Yes (Hospitalization, Other)
  Sender: FDA-Public Use
  Company Number: KR-REGENERON PHARMACEUTICALS, INC.-2015-11591

PATIENT

DRUGS (2)
  1. EYLEA [Suspect]
     Active Substance: AFLIBERCEPT
     Dosage: 4TH INJECTION
     Route: 031
     Dates: start: 20150615, end: 20150615
  2. EYLEA [Suspect]
     Active Substance: AFLIBERCEPT
     Indication: AGE-RELATED MACULAR DEGENERATION
     Dosage: DAILY DOSE 2 MG
     Route: 031
     Dates: start: 20141203

REACTIONS (9)
  - Visual impairment [Recovered/Resolved]
  - Knee arthroplasty [Unknown]
  - Lung cyst [Unknown]
  - Metamorphopsia [Recovered/Resolved]
  - Product use issue [Unknown]
  - Age-related macular degeneration [Recovered/Resolved]
  - Cough [Unknown]
  - Vision blurred [Recovered/Resolved]
  - Feeling abnormal [Unknown]

NARRATIVE: CASE EVENT DATE: 201506
